FAERS Safety Report 7132558-6 (Version None)
Quarter: 2010Q4

REPORT INFORMATION
  Report Type: 
  Country: None (occurrence: None)
  Receive Date: 20101202
  Receipt Date: 20101123
  Transmission Date: 20110411
  Serious: Yes (Other)
  Sender: FDA-Public Use
  Company Number: ES-JNJFOC-20101108449

PATIENT
  Sex: Male

DRUGS (2)
  1. PREZISTA [Suspect]
     Indication: HIV INFECTION
     Dosage: 3 X 300 MG; GIVEN THAT THE 400 MG TABLET WAS TILL NOT AVAILABLE IN SPAIN.
     Route: 048
  2. RITONAVIR [Concomitant]
     Indication: HIV INFECTION
     Route: 048

REACTIONS (2)
  - DEPRESSION [None]
  - OFF LABEL USE [None]
